FAERS Safety Report 23689336 (Version 1)
Quarter: 2024Q1

REPORT INFORMATION
  Report Type: Spontaneous
  Country: DE (occurrence: DE)
  Receive Date: 20240331
  Receipt Date: 20240331
  Transmission Date: 20240409
  Serious: Yes (Other)
  Sender: FDA-Public Use
  Company Number: DE-SKF-000095

PATIENT
  Age: 41 Year
  Sex: Male

DRUGS (18)
  1. PREGABALIN [Suspect]
     Active Substance: PREGABALIN
     Indication: Product used for unknown indication
     Route: 065
  2. BUPROPION [Suspect]
     Active Substance: BUPROPION
     Indication: Product used for unknown indication
     Route: 065
  3. MORPHINE [Suspect]
     Active Substance: MORPHINE
     Indication: Product used for unknown indication
     Route: 065
  4. TRAMADOL [Suspect]
     Active Substance: TRAMADOL\TRAMADOL HYDROCHLORIDE
     Indication: Product used for unknown indication
     Route: 065
  5. NORDAZEPAM [Suspect]
     Active Substance: NORDAZEPAM
     Indication: Product used for unknown indication
     Route: 065
  6. OXAZEPAM [Suspect]
     Active Substance: OXAZEPAM
     Indication: Product used for unknown indication
     Route: 065
  7. LORAZEPAM [Suspect]
     Active Substance: LORAZEPAM
     Indication: Product used for unknown indication
     Route: 065
  8. BROMAZEPAM [Suspect]
     Active Substance: BROMAZEPAM
     Indication: Product used for unknown indication
     Route: 065
  9. TRIMIPRAMINE [Suspect]
     Active Substance: TRIMIPRAMINE
     Indication: Product used for unknown indication
     Route: 065
  10. DULOXETINE [Suspect]
     Active Substance: DULOXETINE
     Indication: Product used for unknown indication
     Route: 065
  11. MIRTAZAPINE [Suspect]
     Active Substance: MIRTAZAPINE
     Indication: Product used for unknown indication
     Route: 065
  12. ALCOHOL [Suspect]
     Active Substance: ALCOHOL
     Indication: Product used for unknown indication
     Route: 065
  13. DULOXETINE [Suspect]
     Active Substance: DULOXETINE
     Indication: Product used for unknown indication
     Route: 065
  14. ALPHA-PHP [Suspect]
     Active Substance: ALPHA-PHP
     Indication: Product used for unknown indication
     Route: 065
  15. .ALPHA.-PYRROLIDINOISOHEXANOPHENONE [Suspect]
     Active Substance: .ALPHA.-PYRROLIDINOISOHEXANOPHENONE
     Indication: Product used for unknown indication
     Route: 065
  16. DESMETRAMADOL [Suspect]
     Active Substance: DESMETRAMADOL
     Indication: Product used for unknown indication
     Route: 065
  17. N-DESMETHYLTRIMIPRAMINE [Suspect]
     Active Substance: N-DESMETHYLTRIMIPRAMINE
     Indication: Product used for unknown indication
     Route: 065
  18. 3-METHYLMETHCATHINONE [Suspect]
     Active Substance: 3-METHYLMETHCATHINONE
     Indication: Product used for unknown indication
     Route: 065

REACTIONS (4)
  - Substance abuse [Unknown]
  - Aggression [Unknown]
  - Restlessness [Unknown]
  - Screaming [Unknown]
